FAERS Safety Report 4999622-9 (Version None)
Quarter: 2006Q2

REPORT INFORMATION
  Report Type: 
  Country: None (occurrence: None)
  Receive Date: 20060509
  Receipt Date: 20060509
  Transmission Date: 20061013
  Serious: Yes (Life-Threatening)
  Sender: FDA-Public Use
  Company Number: None

PATIENT
  Sex: Female

DRUGS (1)
  1. DILANTIN [Suspect]
     Indication: BIOPSY BRAIN
     Dates: start: 20050601, end: 20050710

REACTIONS (6)
  - FATIGUE [None]
  - HYPOACUSIS [None]
  - MOUTH ULCERATION [None]
  - POLLAKIURIA [None]
  - SKIN EXFOLIATION [None]
  - WEIGHT DECREASED [None]
